FAERS Safety Report 24827000 (Version 1)
Quarter: 2025Q1

REPORT INFORMATION
  Report Type: Spontaneous
  Country: US (occurrence: None)
  Receive Date: 20250109
  Receipt Date: 20250109
  Transmission Date: 20250409
  Serious: Yes (Life-Threatening, Hospitalization, Disabling)
  Sender: FDA-CTU
  Company Number: None

PATIENT
  Age: 53 Year
  Sex: Female
  Weight: 75.15 kg

DRUGS (7)
  1. KEYTRUDA [Suspect]
     Active Substance: PEMBROLIZUMAB
     Indication: Breast cancer
     Route: 050
  2. ABRAXANE [Concomitant]
     Active Substance: PACLITAXEL
  3. ZOMETA [Concomitant]
     Active Substance: ZOLEDRONIC ACID
  4. ESCITALOPRAM [Concomitant]
     Active Substance: ESCITALOPRAM OXALATE
  5. TOPIRAMATE [Concomitant]
     Active Substance: TOPIRAMATE
  6. METHIMAZOLE [Concomitant]
     Active Substance: METHIMAZOLE
  7. HYDROCORTISONE [Concomitant]
     Active Substance: HYDROCORTISONE

REACTIONS (3)
  - Thyroid disorder [None]
  - Tachycardia [None]
  - Addison^s disease [None]
